FAERS Safety Report 18851888 (Version 1)
Quarter: 2021Q1

REPORT INFORMATION
  Report Type: Other
  Country: ZA (occurrence: ZA)
  Receive Date: 20210205
  Receipt Date: 20210205
  Transmission Date: 20210420
  Serious: Yes (Other)
  Sender: FDA-Public Use
  Company Number: ZA-ROCHE-2762735

PATIENT
  Age: 75 Year
  Sex: Female

DRUGS (9)
  1. LUCENTIS [Suspect]
     Active Substance: RANIBIZUMAB
     Dosage: 0.5 MG (0.05 ML)
     Route: 050
     Dates: start: 20181105
  2. LUCENTIS [Suspect]
     Active Substance: RANIBIZUMAB
     Route: 047
     Dates: start: 201909
  3. LUCENTIS [Suspect]
     Active Substance: RANIBIZUMAB
     Route: 047
     Dates: start: 20201029
  4. LUCENTIS [Suspect]
     Active Substance: RANIBIZUMAB
     Indication: NEOVASCULAR AGE-RELATED MACULAR DEGENERATION
     Route: 050
     Dates: start: 201810
  5. LUCENTIS [Suspect]
     Active Substance: RANIBIZUMAB
     Dosage: 0.5 MG (0.05 ML)
     Route: 065
     Dates: start: 20190312
  6. LUCENTIS [Suspect]
     Active Substance: RANIBIZUMAB
     Dosage: 0.5 MG (0.05 ML)
     Route: 065
     Dates: start: 20190820
  7. LUCENTIS [Suspect]
     Active Substance: RANIBIZUMAB
     Dosage: 0.5 MG (0.05 ML)
     Route: 065
     Dates: start: 20190211
  8. LUCENTIS [Suspect]
     Active Substance: RANIBIZUMAB
     Route: 047
     Dates: start: 20200929
  9. LUCENTIS [Suspect]
     Active Substance: RANIBIZUMAB
     Route: 047
     Dates: start: 201909

REACTIONS (6)
  - Retinal thickening [Unknown]
  - Retinal neovascularisation [Unknown]
  - Visual acuity reduced [Unknown]
  - Visual impairment [Unknown]
  - Retinal oedema [Unknown]
  - Macular oedema [Unknown]

NARRATIVE: CASE EVENT DATE: 20200611
